FAERS Safety Report 5082269-6 (Version None)
Quarter: 2006Q3

REPORT INFORMATION
  Report Type: 
  Country: None (occurrence: None)
  Receive Date: 20060720
  Receipt Date: 20060417
  Transmission Date: 20061208
  Serious: Yes (Hospitalization, Other)
  Sender: FDA-Public Use
  Company Number: 2006053483

PATIENT
  Sex: Female

DRUGS (2)
  1. CELEBREX [Suspect]
     Indication: ARTHRALGIA
     Dates: start: 19990609
  2. VIOXX [Suspect]
     Indication: ARTHRALGIA
     Dates: start: 19990712

REACTIONS (1)
  - MYOCARDIAL INFARCTION [None]
